FAERS Safety Report 7420989-6 (Version None)
Quarter: 2011Q2

REPORT INFORMATION
  Report Type: 
  Country: None (occurrence: None)
  Receive Date: 20110418
  Receipt Date: 20110411
  Transmission Date: 20111010
  Serious: Yes (Other)
  Sender: FDA-Public Use
  Company Number: US-ROCHE-761231

PATIENT
  Sex: Male
  Weight: 72.6 kg

DRUGS (5)
  1. E-MYCIN [Concomitant]
  2. ACCUTANE [Suspect]
     Route: 065
     Dates: start: 20000901, end: 20010119
  3. ACCUTANE [Suspect]
     Route: 065
     Dates: end: 20010701
  4. ACCUTANE [Suspect]
     Indication: ACNE
     Route: 065
     Dates: start: 19990201, end: 20000401
  5. TETRACYCLINE [Concomitant]

REACTIONS (8)
  - RECTAL POLYP [None]
  - COLITIS ULCERATIVE [None]
  - BLOOD TRIGLYCERIDES INCREASED [None]
  - MELANOCYTIC NAEVUS [None]
  - BRONCHITIS [None]
  - BACK PAIN [None]
  - PNEUMONIA [None]
  - IRRITABLE BOWEL SYNDROME [None]
